FAERS Safety Report 12278047 (Version 2)
Quarter: 2017Q3

REPORT INFORMATION
  Report Type: Spontaneous
  Country: US (occurrence: US)
  Receive Date: 20160418
  Receipt Date: 20170926
  Transmission Date: 20171127
  Serious: Yes (Death, Other)
  Sender: FDA-Public Use
  Company Number: US-SUN PHARMACEUTICAL INDUSTRIES LTD-2016US-114795

PATIENT
  Age: 56 Year
  Sex: Female

DRUGS (4)
  1. CARBOPLATIN. [Suspect]
     Active Substance: CARBOPLATIN
     Indication: INTRADUCTAL PROLIFERATIVE BREAST LESION
     Dosage: UNK UNK, 1/WEEK
     Route: 065
     Dates: start: 200701
  2. CARBOPLATIN. [Suspect]
     Active Substance: CARBOPLATIN
     Indication: METASTASES TO MENINGES
  3. NAB-PACLITAXEL [Suspect]
     Active Substance: PACLITAXEL
     Indication: INTRADUCTAL PROLIFERATIVE BREAST LESION
     Dosage: 100 MG/M2, 1/WEEK
     Route: 065
     Dates: start: 200701
  4. NAB-PACLITAXEL [Suspect]
     Active Substance: PACLITAXEL
     Indication: METASTASES TO MENINGES

REACTIONS (6)
  - Urosepsis [Fatal]
  - Death [Fatal]
  - Neutropenia [Unknown]
  - Metastases to meninges [Unknown]
  - Anaemia [Unknown]
  - Incontinence [Unknown]
